FAERS Safety Report 6267062-0 (Version None)
Quarter: 2009Q3

REPORT INFORMATION
  Report Type: 
  Country: None (occurrence: None)
  Receive Date: 20090710
  Receipt Date: 20090710
  Transmission Date: 20100115
  Serious: Yes (Other)
  Sender: FDA-Public Use
  Company Number: None

PATIENT
  Age: 6 Year
  Sex: Female
  Weight: 21.7727 kg

DRUGS (1)
  1. SINGULAIR [Suspect]
     Indication: MULTIPLE ALLERGIES
     Dosage: 1 TABLET DAILY
     Dates: start: 20090624, end: 20090709

REACTIONS (3)
  - AGGRESSION [None]
  - FATIGUE [None]
  - NIGHTMARE [None]
